FAERS Safety Report 17190377 (Version 1)
Quarter: 2019Q4

REPORT INFORMATION
  Report Type: Spontaneous
  Country: CN (occurrence: CN)
  Receive Date: 20191223
  Receipt Date: 20191223
  Transmission Date: 20200122
  Serious: Yes (Hospitalization)
  Sender: FDA-Public Use
  Company Number: CN-DRREDDYS-GPV/CHN/19/0117505

PATIENT
  Age: 54 Year
  Sex: Male
  Weight: 88 kg

DRUGS (2)
  1. OLANZAPINE. [Suspect]
     Active Substance: OLANZAPINE
     Dosage: EVERY NIGHT
     Route: 048
     Dates: start: 20191108
  2. OLANZAPINE. [Suspect]
     Active Substance: OLANZAPINE
     Indication: PSYCHOTIC DISORDER
     Dosage: EVERY NIGHT
     Route: 048
     Dates: start: 20191013, end: 20191108

REACTIONS (1)
  - Cardiometabolic syndrome [Recovering/Resolving]

NARRATIVE: CASE EVENT DATE: 20191108
